FAERS Safety Report 6158368-4 (Version None)
Quarter: 2009Q2

REPORT INFORMATION
  Report Type: 
  Country: None (occurrence: None)
  Receive Date: 20090417
  Receipt Date: 20090409
  Transmission Date: 20091009
  Serious: Yes (Other)
  Sender: FDA-Public Use
  Company Number: US-BAYER-200917994NA

PATIENT
  Age: 50 Year
  Sex: Female

DRUGS (2)
  1. BETASERON [Suspect]
     Indication: MULTIPLE SCLEROSIS
     Dosage: TOTAL DAILY DOSE: 8 MIU
     Route: 058
     Dates: start: 20050412
  2. BETASERON [Suspect]
     Dosage: TOTAL DAILY DOSE: 6 MIU
     Route: 058

REACTIONS (3)
  - MIGRAINE [None]
  - MUSCLE SPASTICITY [None]
  - MUSCULAR WEAKNESS [None]
